FAERS Safety Report 4543618-8 (Version None)
Quarter: 2005Q1

REPORT INFORMATION
  Report Type: 
  Country: None (occurrence: None)
  Receive Date: 20050103
  Receipt Date: 20041220
  Transmission Date: 20050727
  Serious: Yes (Hospitalization)
  Sender: FDA-Public Use
  Company Number: 389138

PATIENT
  Age: 77 Year
  Sex: Male

DRUGS (11)
  1. ARTIST [Suspect]
     Indication: CARDIAC FAILURE
     Route: 048
     Dates: start: 20040924, end: 20041101
  2. WARFARIN [Suspect]
     Indication: CARDIAC FAILURE
     Route: 048
     Dates: start: 20041014, end: 20041029
  3. GLIMICRON [Concomitant]
     Dates: start: 20041001, end: 20041102
  4. BLOPRESS [Concomitant]
     Dates: start: 20040920
  5. LANIRAPID [Concomitant]
     Dates: start: 20040920
  6. LASIX [Concomitant]
     Dates: start: 20040920
  7. ALDACTONE A [Concomitant]
     Dates: start: 20040920
  8. VASOLAN [Concomitant]
     Dates: start: 20040920
  9. ITOROL [Concomitant]
     Dates: start: 20040920
  10. MUCOSTA [Concomitant]
     Dates: start: 20040920
  11. LAFUTIDINE [Concomitant]
     Dates: start: 20040920

REACTIONS (6)
  - ALANINE AMINOTRANSFERASE INCREASED [None]
  - ASPARTATE AMINOTRANSFERASE INCREASED [None]
  - BLOOD BILIRUBIN INCREASED [None]
  - BLOOD LACTATE DEHYDROGENASE INCREASED [None]
  - HEPATOCELLULAR DAMAGE [None]
  - LIVER DISORDER [None]
